FAERS Safety Report 16171854 (Version 1)
Quarter: 2019Q2

REPORT INFORMATION
  Report Type: Report from Study
  Country: IT (occurrence: IT)
  Receive Date: 20190408
  Receipt Date: 20190408
  Transmission Date: 20190711
  Serious: Yes (Hospitalization)
  Sender: FDA-Public Use
  Company Number: IT-ELI_LILLY_AND_COMPANY-IT201904000283

PATIENT
  Age: 77 Year
  Sex: Female

DRUGS (1)
  1. INSULIN, LISPRO [Suspect]
     Active Substance: INSULIN LISPRO
     Indication: DIABETES MELLITUS
     Dosage: 11 [IU], SINGLE
     Route: 058
     Dates: start: 20190228, end: 20190228

REACTIONS (5)
  - Movement disorder [Recovered/Resolved]
  - Hypoglycaemia [Recovered/Resolved]
  - Sopor [Recovered/Resolved]
  - Bradyphrenia [Recovered/Resolved]
  - Disorientation [Recovered/Resolved]

NARRATIVE: CASE EVENT DATE: 20190228
